FAERS Safety Report 9307737 (Version 1)
Quarter: 2013Q2

REPORT INFORMATION
  Report Type: Spontaneous
  Country: CA (occurrence: CA)
  Receive Date: 20130524
  Receipt Date: 20130524
  Transmission Date: 20140414
  Serious: Yes (Other)
  Sender: FDA-Public Use
  Company Number: CA-MILLENNIUM PHARMACEUTICALS, INC.-2013-03774

PATIENT
  Sex: 0

DRUGS (1)
  1. VELCADE [Suspect]
     Indication: PRODUCT USED FOR UNKNOWN INDICATION
     Route: 065

REACTIONS (8)
  - Compression fracture [Unknown]
  - Muscle spasms [Unknown]
  - Neck pain [Unknown]
  - Cardiogenic shock [Unknown]
  - Arrhythmia [Unknown]
  - Renal failure [Unknown]
  - Arthralgia [Unknown]
  - Constipation [Unknown]
